FAERS Safety Report 24718087 (Version 1)
Quarter: 2024Q4

REPORT INFORMATION
  Report Type: Spontaneous
  Country: US (occurrence: None)
  Receive Date: 20241210
  Receipt Date: 20241210
  Transmission Date: 20250115
  Serious: Yes (Hospitalization)
  Sender: Public
  Company Number: None

PATIENT
  Age: 32 Year
  Sex: Female

DRUGS (8)
  1. RINVOQ [Suspect]
     Active Substance: UPADACITINIB
     Indication: Neurodermatitis
     Dosage: FREQUENCY : DAILY;?
     Route: 048
     Dates: start: 20231218
  2. ALBUTEROL AER HFA [Concomitant]
  3. AZELASTINE SPR 0.1% [Concomitant]
  4. CICLOPIROX SOL 8% [Concomitant]
  5. CLOBETASOL OIN 0.05% [Concomitant]
  6. CLONAZEPAM [Concomitant]
     Active Substance: CLONAZEPAM
  7. CYMBALTA [Concomitant]
     Active Substance: DULOXETINE HYDROCHLORIDE
  8. DILTIAZEM [Concomitant]
     Active Substance: DILTIAZEM

REACTIONS (1)
  - Pneumonia [None]

NARRATIVE: CASE EVENT DATE: 20241101
